FAERS Safety Report 9492167 (Version 1)
Quarter: 2013Q3

REPORT INFORMATION
  Report Type: Spontaneous
  Country: US (occurrence: US)
  Receive Date: 20130830
  Receipt Date: 20130830
  Transmission Date: 20140515
  Serious: No
  Sender: FDA-Public Use
  Company Number: US-TEVA-429365USA

PATIENT
  Sex: Male

DRUGS (1)
  1. CLARAVIS [Suspect]
     Indication: ACNE
     Dates: start: 201208, end: 201302

REACTIONS (3)
  - Acne [Not Recovered/Not Resolved]
  - Drug ineffective [Unknown]
  - Dry skin [Unknown]
